FAERS Safety Report 11258495 (Version 1)
Quarter: 2015Q3

REPORT INFORMATION
  Report Type: Spontaneous
  Country: US (occurrence: US)
  Receive Date: 20150710
  Receipt Date: 20150710
  Transmission Date: 20151125
  Serious: Yes (Hospitalization)
  Sender: FDA-Public Use
  Company Number: US-AUROBINDO-AUR-APL-2015-05975

PATIENT
  Age: 55 Year
  Sex: Female

DRUGS (3)
  1. CALCIUM PLUS VITAMIN D [Suspect]
     Active Substance: CALCIUM\VITAMIN D
     Indication: OSTEOPOROSIS
     Route: 065
  2. ALENDRONATE SODIUM. [Suspect]
     Active Substance: ALENDRONATE SODIUM
     Indication: OSTEOPOROSIS
     Dosage: 10 MG, ONCE A DAY
     Route: 065
  3. ALENDRONATE SODIUM. [Suspect]
     Active Substance: ALENDRONATE SODIUM
     Dosage: 70 MG, EVERY WEEK

REACTIONS (5)
  - Nephrotic syndrome [Recovered/Resolved]
  - Acute kidney injury [Recovered/Resolved]
  - Oedema peripheral [Recovered/Resolved]
  - Proteinuria [Recovered/Resolved]
  - Hypertension [Recovered/Resolved]
